FAERS Safety Report 21157729 (Version 2)
Quarter: 2022Q3

REPORT INFORMATION
  Report Type: Spontaneous
  Country: US (occurrence: US)
  Receive Date: 20220801
  Receipt Date: 20220831
  Transmission Date: 20221027
  Serious: Yes (Hospitalization)
  Sender: FDA-Public Use
  Company Number: US-BAYER-2022A105961

PATIENT
  Sex: Male
  Weight: 73.93 kg

DRUGS (2)
  1. STIVARGA [Suspect]
     Active Substance: REGORAFENIB
     Indication: Product used for unknown indication
     Dosage: UNK
  2. LONSURF [Suspect]
     Active Substance: TIPIRACIL HYDROCHLORIDE\TRIFLURIDINE
     Indication: Rectosigmoid cancer
     Dosage: 60 MG, BID
     Route: 048
     Dates: start: 20220509, end: 20220704

REACTIONS (9)
  - Hepatic failure [None]
  - Tremor [None]
  - Confusional state [None]
  - Dysphonia [None]
  - Chromaturia [None]
  - Asthenia [None]
  - Fatigue [None]
  - Accidental underdose [None]
  - Dyspnoea [None]
